FAERS Safety Report 10608048 (Version 2)
Quarter: 2014Q4

REPORT INFORMATION
  Report Type: Spontaneous
  Country: US (occurrence: US)
  Receive Date: 20141125
  Receipt Date: 20141205
  Transmission Date: 20150529
  Serious: No
  Sender: FDA-Public Use
  Company Number: US-BRISTOL-MYERS SQUIBB COMPANY-21253711

PATIENT
  Age: 69 Year
  Sex: Male
  Weight: 107.03 kg

DRUGS (4)
  1. METFORMIN HCL [Suspect]
     Active Substance: METFORMIN HYDROCHLORIDE
     Route: 048
  2. LYRICA [Concomitant]
     Active Substance: PREGABALIN
  3. MIRABEGRON [Concomitant]
     Active Substance: MIRABEGRON
  4. FARXIGA [Suspect]
     Active Substance: DAPAGLIFLOZIN PROPANEDIOL
     Indication: TYPE 2 DIABETES MELLITUS
     Dosage: TABS
     Route: 048
     Dates: start: 20140721, end: 20140909

REACTIONS (6)
  - Blood glucose fluctuation [Not Recovered/Not Resolved]
  - Dry mouth [Unknown]
  - Glycosylated haemoglobin increased [Unknown]
  - Weight decreased [Not Recovered/Not Resolved]
  - Dizziness [Not Recovered/Not Resolved]
  - Urine output increased [Unknown]

NARRATIVE: CASE EVENT DATE: 201407
